FAERS Safety Report 8312297-6 (Version None)
Quarter: 2012Q2

REPORT INFORMATION
  Report Type: 
  Country: None (occurrence: None)
  Receive Date: 20120425
  Receipt Date: 20120413
  Transmission Date: 20120825
  Serious: Yes (Hospitalization, Other)
  Sender: FDA-Public Use
  Company Number: CA-ROCHE-GNE309128

PATIENT
  Sex: Female
  Weight: 110.12 kg

DRUGS (2)
  1. OMALIZUMAB [Suspect]
     Indication: ASTHMA
     Dosage: 225 MG, Q2W
     Route: 058
     Dates: start: 20070430
  2. COZAAR [Concomitant]
     Indication: PRODUCT USED FOR UNKNOWN INDICATION
     Dosage: UNK

REACTIONS (10)
  - ARRHYTHMIA [None]
  - GAIT DISTURBANCE [None]
  - MUSCULOSKELETAL STIFFNESS [None]
  - DYSPNOEA [None]
  - HAEMATOMA [None]
  - PULMONARY OEDEMA [None]
  - HAEMORRHAGE [None]
  - FATIGUE [None]
  - CHEST PAIN [None]
  - HYPERTENSION [None]
